FAERS Safety Report 8274426-2 (Version None)
Quarter: 2012Q2

REPORT INFORMATION
  Report Type: 
  Country: None (occurrence: None)
  Receive Date: 20120409
  Receipt Date: 20120409
  Transmission Date: 20120825
  Serious: Yes (Hospitalization)
  Sender: FDA-Public Use
  Company Number: SP05654

PATIENT
  Age: 67 Year
  Sex: Female
  Weight: 86 kg

DRUGS (3)
  1. VITAMIN C (TABLETS) [Concomitant]
  2. ASPIRIN [Concomitant]
  3. MOVIPREP [Suspect]
     Indication: BOWEL PREPARATION
     Dosage: ORAL
     Route: 048
     Dates: start: 20120202, end: 20120203

REACTIONS (11)
  - PHOTOPHOBIA [None]
  - GAIT DISTURBANCE [None]
  - BACK PAIN [None]
  - HAEMORRHOIDS [None]
  - CHILLS [None]
  - PRESYNCOPE [None]
  - HEADACHE [None]
  - ANAPHYLACTIC SHOCK [None]
  - NEUROLOGICAL EYELID DISORDER [None]
  - MUSCULOSKELETAL DISORDER [None]
  - CHEST PAIN [None]
